FAERS Safety Report 14079718 (Version 1)
Quarter: 2017Q4

REPORT INFORMATION
  Report Type: Spontaneous
  Country: FR (occurrence: FR)
  Receive Date: 20171012
  Receipt Date: 20171012
  Transmission Date: 20180321
  Serious: Yes (Hospitalization, Other)
  Sender: FDA-Public Use
  Company Number: FR-PFIZER INC-2017433293

PATIENT
  Age: 75 Year
  Sex: Male

DRUGS (16)
  1. ZYVOXID [Suspect]
     Active Substance: LINEZOLID
     Indication: STAPHYLOCOCCAL INFECTION
     Dosage: 1200 MG, 1X/DAY (2 DOSAGE FORMS ONCE DAILY)
     Route: 048
     Dates: start: 20170821, end: 20170904
  2. CELLCEPT [Concomitant]
     Active Substance: MYCOPHENOLATE MOFETIL\MYCOPHENOLATE MOFETIL HYDROCHLORIDE
     Dosage: 1000 MG, 2X/DAY (2 TABLETS TWICE DAILY)
  3. PROGRAF [Concomitant]
     Active Substance: TACROLIMUS\TACROLIMUS ANHYDROUS
     Dosage: 0.5 MG, 2X/DAY
  4. PREDNISOLONE. [Concomitant]
     Active Substance: PREDNISOLONE
     Dosage: 30 MG, DAILY
  5. CALCIPARINE [Concomitant]
     Active Substance: HEPARIN CALCIUM
     Dosage: 0.6 ML, 2X/DAY
  6. TAHOR [Concomitant]
     Active Substance: ATORVASTATIN CALCIUM
     Dosage: 10 MG, 1X/DAY (IN THE EVENING)
  7. GALVUS [Concomitant]
     Active Substance: VILDAGLIPTIN
     Dosage: 50 MG, 1X/DAY (IN THE MORNING)
  8. BACTRIM [Concomitant]
     Active Substance: SULFAMETHOXAZOLE\TRIMETHOPRIM
     Dosage: UNK
  9. LEXOMIL [Concomitant]
     Active Substance: BROMAZEPAM
     Dosage: 0.25 DF, 1X/DAY (ONE QUARTER IN THE EVENING)
  10. ESOMEPRAZOLE [Concomitant]
     Active Substance: ESOMEPRAZOLE
     Dosage: 20 MG, 1X/DAY (IN THE EVENING)
  11. PREDNISOLONE. [Concomitant]
     Active Substance: PREDNISOLONE
     Dosage: 35 MG, DAILY
     Dates: end: 20170823
  12. NOVONORM [Concomitant]
     Active Substance: REPAGLINIDE
     Dosage: 2 MG, 1X/DAY (IN THE MORNING)
  13. TEMERIT [Concomitant]
     Active Substance: NEBIVOLOL
     Dosage: 1.25 MG, 1X/DAY (1 QUARTER TABLET IN THE MORNING)
  14. XATRAL [Concomitant]
     Active Substance: ALFUZOSIN
     Dosage: 10 MG, 1X/DAY (IN THE EVENING)
  15. CEFIXIME. [Concomitant]
     Active Substance: CEFIXIME
     Dosage: 200 MG, 2X/DAY
  16. TRIFLUCAN [Concomitant]
     Active Substance: FLUCONAZOLE
     Dosage: UNK

REACTIONS (5)
  - Off label use [Unknown]
  - Anaemia [Not Recovered/Not Resolved]
  - Thrombocytopenia [Recovered/Resolved]
  - Complications of transplant surgery [Unknown]
  - Post procedural haemorrhage [Unknown]

NARRATIVE: CASE EVENT DATE: 20170821
